FAERS Safety Report 11478568 (Version 1)
Quarter: 2015Q3

REPORT INFORMATION
  Report Type: Report from Study
  Country: CA (occurrence: CA)
  Receive Date: 20150909
  Receipt Date: 20150909
  Transmission Date: 20151125
  Serious: Yes (Other)
  Sender: FDA-Public Use
  Company Number: CA-GILEAD-2015-0170145

PATIENT
  Age: 49 Year
  Sex: Male

DRUGS (2)
  1. LEDIPASVIR/SOFOSBUVIR [Suspect]
     Active Substance: LEDIPASVIR\SOFOSBUVIR
     Indication: HEPATITIS C
     Dosage: 1 DF, UNK
     Route: 065
     Dates: start: 20150618, end: 20150802
  2. RIBAVIRIN. [Suspect]
     Active Substance: RIBAVIRIN
     Indication: HEPATITIS C
     Dosage: 600 UNKNOWN, UNK
     Route: 065
     Dates: start: 20150618, end: 20150802

REACTIONS (10)
  - Speech disorder [Recovered/Resolved]
  - Headache [Recovered/Resolved]
  - Daydreaming [Recovered/Resolved]
  - Paranoia [Recovered/Resolved]
  - Aggression [Recovered/Resolved]
  - Staring [Recovered/Resolved]
  - Insomnia [Recovered/Resolved]
  - Amnesia [Recovered/Resolved]
  - Psychotic disorder [Recovered/Resolved]
  - Hypoaesthesia [Recovered/Resolved]

NARRATIVE: CASE EVENT DATE: 201507
